FAERS Safety Report 17841119 (Version 4)
Quarter: 2020Q3

REPORT INFORMATION
  Report Type: Spontaneous
  Country: US (occurrence: US)
  Receive Date: 20200529
  Receipt Date: 20200925
  Transmission Date: 20201103
  Serious: No
  Sender: FDA-Public Use
  Company Number: US-PFIZER INC-2020211058

PATIENT
  Age: 68 Year
  Sex: Female
  Weight: 88.9 kg

DRUGS (2)
  1. BRILINTA [Concomitant]
     Active Substance: TICAGRELOR
     Dosage: UNK
     Dates: start: 202007
  2. IBRANCE [Suspect]
     Active Substance: PALBOCICLIB
     Indication: BREAST CANCER FEMALE
     Dosage: 125 MG, CYCLIC, (FOR 3 WEEKS, 7 DAYS OFF WITH FOOD)
     Route: 048
     Dates: start: 202005, end: 202006

REACTIONS (5)
  - Product taste abnormal [Unknown]
  - Lymphoedema [Unknown]
  - Liver function test increased [Recovered/Resolved]
  - White blood cell count decreased [Unknown]
  - Poor quality product administered [Unknown]

NARRATIVE: CASE EVENT DATE: 2020
